FAERS Safety Report 8276003-6 (Version None)
Quarter: 2012Q2

REPORT INFORMATION
  Report Type: 
  Country: None (occurrence: None)
  Receive Date: 20120412
  Receipt Date: 20120406
  Transmission Date: 20120825
  Serious: Yes (Other)
  Sender: FDA-Public Use
  Company Number: US-SANOFI-AVENTIS-2012SA024490

PATIENT
  Age: 86 Year
  Sex: Female

DRUGS (2)
  1. LANTUS [Suspect]
     Route: 058
  2. SOLOSTAR [Suspect]

REACTIONS (2)
  - RENAL FAILURE [None]
  - HYPERTENSION [None]
